FAERS Safety Report 8934135 (Version 1)
Quarter: 2012Q4

REPORT INFORMATION
  Report Type: 
  Country: US (occurrence: US)
  Receive Date: 20121129
  Receipt Date: 20121129
  Transmission Date: 20130627
  Serious: No
  Sender: FDA-Public Use
  Company Number: US-GLAXOSMITHKLINE-A0973393A

PATIENT
  Age: 48 Year
  Sex: Female

DRUGS (4)
  1. WELLBUTRIN SR [Suspect]
     Indication: DEPRESSION
     Dosage: 150MG Twice per day
     Route: 048
     Dates: start: 2006, end: 2006
  2. PROTONIX [Concomitant]
  3. ALLEGRA [Concomitant]
  4. NEXIUM [Concomitant]

REACTIONS (1)
  - Drug ineffective [Recovering/Resolving]
